FAERS Safety Report 6537985-3 (Version None)
Quarter: 2010Q1

REPORT INFORMATION
  Report Type: 
  Country: None (occurrence: None)
  Receive Date: 20100112
  Receipt Date: 20100112
  Transmission Date: 20100710
  Serious: Yes (Other)
  Sender: FDA-Public Use
  Company Number: None

PATIENT
  Age: 26 Year
  Sex: Female
  Weight: 70.3075 kg

DRUGS (1)
  1. MEFLOQUINE HCL [Suspect]
     Indication: MALARIA PROPHYLAXIS
     Dosage: 250 MG 1/WEEK PO
     Route: 048
     Dates: start: 20080824, end: 20080824

REACTIONS (8)
  - ANXIETY [None]
  - EMOTIONAL DISORDER [None]
  - FEAR [None]
  - FEELING OF DESPAIR [None]
  - INSOMNIA [None]
  - PARANOIA [None]
  - PSYCHOMOTOR HYPERACTIVITY [None]
  - THINKING ABNORMAL [None]
